FAERS Safety Report 19036372 (Version 1)
Quarter: 2021Q1

REPORT INFORMATION
  Report Type: Spontaneous
  Country: US (occurrence: US)
  Receive Date: 20210319
  Receipt Date: 20210319
  Transmission Date: 20210420
  Serious: Yes (Hospitalization)
  Sender: FDA-Public Use
  Company Number: None

PATIENT
  Age: 74 Year
  Sex: Male
  Weight: 79.38 kg

DRUGS (1)
  1. CIPROFLOXACIN. [Suspect]
     Active Substance: CIPROFLOXACIN
     Indication: PROPHYLAXIS
     Dates: start: 20210217

REACTIONS (5)
  - Calculus bladder [None]
  - Post procedural complication [None]
  - Haemorrhage [None]
  - Urinary retention [None]
  - Pain [None]

NARRATIVE: CASE EVENT DATE: 20210217
